FAERS Safety Report 8926301 (Version 1)
Quarter: 2012Q4

REPORT INFORMATION
  Report Type: 
  Country: US (occurrence: US)
  Receive Date: 20121127
  Receipt Date: 20121127
  Transmission Date: 20130627
  Serious: Yes (Hospitalization)
  Sender: FDA-Public Use
  Company Number: US-GLAXOSMITHKLINE-A0776006A

PATIENT
  Age: 50 Year
  Sex: Female
  Weight: 181.8 kg

DRUGS (6)
  1. AVANDIA [Suspect]
     Indication: TYPE 2 DIABETES MELLITUS
     Dosage: 8MG Per day
     Route: 048
     Dates: start: 1996
  2. SINGULAIR [Concomitant]
  3. TIAZAC [Concomitant]
  4. ADVAIR [Concomitant]
  5. PROTONIX [Concomitant]
  6. VIOXX [Concomitant]

REACTIONS (2)
  - Cardiac failure congestive [Not Recovered/Not Resolved]
  - Heart injury [Unknown]
